FAERS Safety Report 10343288 (Version 1)
Quarter: 2014Q3

REPORT INFORMATION
  Report Type: Spontaneous
  Country: GB (occurrence: GB)
  Receive Date: 20140725
  Receipt Date: 20140725
  Transmission Date: 20150326
  Serious: Yes (Disabling, Other)
  Sender: FDA-Public Use
  Company Number: GB-WATSON-2014-15969

PATIENT
  Age: 75 Year
  Sex: Male
  Weight: 95 kg

DRUGS (5)
  1. MADOPAR [Concomitant]
     Active Substance: BENSERAZIDE HYDROCHLORIDE\LEVODOPA
     Indication: PRODUCT USED FOR UNKNOWN INDICATION
     Dosage: UNK
     Route: 065
  2. MEBEVERINE [Concomitant]
     Active Substance: MEBEVERINE
     Indication: PRODUCT USED FOR UNKNOWN INDICATION
     Dosage: UNK
     Route: 065
  3. SPIROCO [Suspect]
     Active Substance: ROPINIROLE HYDROCHLORIDE
     Indication: PARKINSON^S DISEASE
     Dosage: 8 MG, UNKNOWN
     Route: 048
     Dates: start: 20140621, end: 20140623
  4. ROPINIROLE. [Suspect]
     Active Substance: ROPINIROLE
     Indication: PARKINSON^S DISEASE
     Dosage: 8 MG, UNKNOWN
     Route: 048
     Dates: start: 20140420, end: 20140425
  5. MADOPAR CR [Concomitant]
     Active Substance: BENSERAZIDE HYDROCHLORIDE\LEVODOPA
     Indication: PRODUCT USED FOR UNKNOWN INDICATION
     Dosage: UNK
     Route: 065

REACTIONS (9)
  - Drug prescribing error [Unknown]
  - Fall [None]
  - Product substitution issue [Unknown]
  - Drug ineffective [Unknown]
  - Musculoskeletal stiffness [None]
  - Product substitution issue [None]
  - Drug dispensing error [None]
  - Product quality issue [None]
  - Immobile [None]
